FAERS Safety Report 5885630-2 (Version None)
Quarter: 2008Q3

REPORT INFORMATION
  Report Type: 
  Country: None (occurrence: None)
  Receive Date: 20080912
  Receipt Date: 20080904
  Transmission Date: 20090109
  Serious: Yes (Hospitalization, Other)
  Sender: FDA-Public Use
  Company Number: WAES 0801GBR00057

PATIENT
  Age: 60 Year
  Sex: Male

DRUGS (8)
  1. ISENTRESS [Suspect]
     Indication: HIV INFECTION
     Dosage: 400 MG/BID; PO
     Route: 048
     Dates: start: 20071101
  2. ABACAVIR SULFATE [Concomitant]
  3. DIDANOSINE [Concomitant]
  4. EFAVIRENZ [Concomitant]
  5. FAMCICLOVIR [Concomitant]
  6. LAMIVUDINE [Concomitant]
  7. LANSOPRAZOLE [Concomitant]
  8. SULFAMETHOXAZOLE + TRIMETHOPRIM [Concomitant]

REACTIONS (6)
  - ALANINE AMINOTRANSFERASE ABNORMAL [None]
  - ASCITES [None]
  - BLOOD ALBUMIN ABNORMAL [None]
  - BLOOD ALKALINE PHOSPHATASE ABNORMAL [None]
  - HEPATIC CIRRHOSIS [None]
  - NODULAR REGENERATIVE HYPERPLASIA [None]
